FAERS Safety Report 15090751 (Version 1)
Quarter: 2018Q2

REPORT INFORMATION
  Report Type: Spontaneous
  Country: US (occurrence: US)
  Receive Date: 20180629
  Receipt Date: 20180629
  Transmission Date: 20180711
  Serious: No
  Sender: FDA-Public Use
  Company Number: US-TAKEDA-2018TUS020821

PATIENT
  Age: 53 Year
  Sex: Female

DRUGS (4)
  1. HUMIRA [Suspect]
     Active Substance: ADALIMUMAB
     Indication: PSORIASIS
     Dosage: 80 MG, QD
     Route: 058
     Dates: start: 20170727, end: 20170727
  2. PREVACID [Suspect]
     Active Substance: LANSOPRAZOLE
     Indication: PRODUCT USED FOR UNKNOWN INDICATION
     Route: 065
  3. HUMIRA [Suspect]
     Active Substance: ADALIMUMAB
     Indication: RHEUMATOID ARTHRITIS
     Dosage: 40 MG, Q2WEEKS
     Route: 058
     Dates: start: 201708
  4. HUMIRA [Suspect]
     Active Substance: ADALIMUMAB
     Indication: PSORIATIC ARTHROPATHY
     Dosage: 40 MG, QD
     Route: 058
     Dates: start: 20170803, end: 20170803

REACTIONS (17)
  - Pharyngeal inflammation [Unknown]
  - Micturition urgency [Unknown]
  - Pain in extremity [Not Recovered/Not Resolved]
  - Tongue discomfort [Not Recovered/Not Resolved]
  - Injection site bruising [Unknown]
  - Psoriasis [Recovered/Resolved]
  - Hyperkeratosis [Unknown]
  - Psoriasis [Recovered/Resolved]
  - Abdominal pain upper [Unknown]
  - Pollakiuria [Unknown]
  - Gastrooesophageal reflux disease [Unknown]
  - Musculoskeletal pain [Not Recovered/Not Resolved]
  - Inflammatory marker increased [Unknown]
  - Rash pruritic [Recovered/Resolved]
  - Arthralgia [Not Recovered/Not Resolved]
  - Helicobacter gastritis [Unknown]
  - Gastritis [Unknown]

NARRATIVE: CASE EVENT DATE: 2017
